FAERS Safety Report 9265843 (Version 1)
Quarter: 2013Q2

REPORT INFORMATION
  Report Type: Spontaneous
  Country: CH (occurrence: CH)
  Receive Date: 20130501
  Receipt Date: 20130501
  Transmission Date: 20140414
  Serious: Yes (Death)
  Sender: FDA-Public Use
  Company Number: CH-GLAXOSMITHKLINE-B0888542A

PATIENT
  Age: 50 Year
  Sex: Male
  Weight: 87 kg

DRUGS (4)
  1. ARIXTRA [Suspect]
     Indication: EMBOLISM ARTERIAL
     Dosage: 7.5MG PER DAY
     Route: 058
     Dates: start: 20130403, end: 20130404
  2. DEXAMETHASONE [Concomitant]
     Indication: METASTASES TO CENTRAL NERVOUS SYSTEM
     Dosage: 4G PER DAY
     Route: 048
     Dates: start: 20130404
  3. KEPPRA [Concomitant]
     Indication: EPILEPSY
     Dosage: 500MG TWICE PER DAY
     Route: 048
     Dates: start: 20130404
  4. NEXIUM [Concomitant]
     Indication: PROPHYLACTIC CHEMOTHERAPY
     Dosage: 40MG PER DAY
     Route: 048

REACTIONS (3)
  - Cerebral haemorrhage [Fatal]
  - Intracranial pressure increased [Fatal]
  - Therapeutic response increased [Fatal]
